FAERS Safety Report 8818202 (Version 1)
Quarter: 2012Q4

REPORT INFORMATION
  Report Type: 
  Country: US (occurrence: US)
  Receive Date: 20121001
  Receipt Date: 20121001
  Transmission Date: 20130627
  Serious: No
  Sender: FDA-Public Use
  Company Number: US-PFIZER INC-2012241337

PATIENT
  Age: 87 Year
  Sex: Female
  Weight: 74.83 kg

DRUGS (4)
  1. PREMARIN [Suspect]
     Indication: ATROPHIC VULVOVAGINITIS
     Dosage: UNK, daily
     Route: 067
     Dates: start: 2012
  2. DIOVAN [Concomitant]
     Indication: HYPERTENSION
     Dosage: 150 mg, daily
  3. LUMIGAN [Concomitant]
     Indication: GLAUCOMA
     Dosage: one drop in each eye at night, daily
     Route: 047
  4. LEVOTHYROXINE [Concomitant]
     Indication: THYROID DISORDER
     Dosage: 50 mcg, daily

REACTIONS (2)
  - Blood cholesterol increased [Unknown]
  - Product quality issue [Unknown]
